FAERS Safety Report 7097616-3 (Version None)
Quarter: 2010Q4

REPORT INFORMATION
  Report Type: 
  Country: None (occurrence: None)
  Receive Date: 20101112
  Receipt Date: 20101103
  Transmission Date: 20110411
  Serious: No
  Sender: FDA-Public Use
  Company Number: GB-BIOGENIDEC-2010BI029661

PATIENT
  Age: 36 Year
  Sex: Male

DRUGS (1)
  1. TYSABRI [Suspect]
     Indication: MULTIPLE SCLEROSIS
     Route: 042
     Dates: start: 20091201, end: 20100826

REACTIONS (5)
  - ALANINE AMINOTRANSFERASE INCREASED [None]
  - COGNITIVE DISORDER [None]
  - CSF PROTEIN INCREASED [None]
  - LYMPHOCYTE COUNT INCREASED [None]
  - PERSONALITY CHANGE [None]
